FAERS Safety Report 9044889 (Version 2)
Quarter: 2016Q4

REPORT INFORMATION
  Report Type: Report from Study
  Country: JP (occurrence: JP)
  Receive Date: 20130130
  Receipt Date: 20161012
  Transmission Date: 20170207
  Serious: Yes (Other)
  Sender: FDA-Public Use
  Company Number: JP-GLAXOSMITHKLINE-B0858785A

PATIENT
  Age: 75 Year
  Sex: Female

DRUGS (9)
  1. FLUTICASONE PROPIONATE+SALMETEROL XINAFOATE 500 [Suspect]
     Active Substance: FLUTICASONE PROPIONATE\SALMETEROL XINAFOATE
     Indication: ASTHMA
     Route: 055
     Dates: start: 20080709
  2. ALOSITOL [Concomitant]
     Active Substance: ALLOPURINOL
     Route: 048
  3. BENET [Concomitant]
     Active Substance: RISEDRONATE SODIUM
     Route: 048
     Dates: end: 20080824
  4. ACTONEL [Concomitant]
     Active Substance: RISEDRONATE SODIUM
     Route: 048
  5. THEO-DUR [Concomitant]
     Active Substance: THEOPHYLLINE ANHYDROUS
     Indication: ASTHMA
     Route: 048
  6. MUCOSTA [Concomitant]
     Active Substance: REBAMIPIDE
     Indication: CHRONIC GASTRITIS
     Route: 048
  7. SINGULAIR [Concomitant]
     Active Substance: MONTELUKAST SODIUM
     Indication: ASTHMA
     Route: 048
  8. PARIET [Concomitant]
     Active Substance: RABEPRAZOLE SODIUM
     Indication: GASTROOESOPHAGEAL REFLUX DISEASE
     Route: 048
  9. AMLODIN OD [Concomitant]
     Active Substance: AMLODIPINE BESYLATE
     Route: 048

REACTIONS (5)
  - C-reactive protein increased [Unknown]
  - Sputum purulent [Unknown]
  - White blood cell count increased [Unknown]
  - Pyrexia [Unknown]
  - Bronchitis [Recovered/Resolved]

NARRATIVE: CASE EVENT DATE: 20090105
